FAERS Safety Report 16541662 (Version 1)
Quarter: 2019Q3

REPORT INFORMATION
  Report Type: Spontaneous
  Country: IT (occurrence: IT)
  Receive Date: 20190708
  Receipt Date: 20190708
  Transmission Date: 20191004
  Serious: Yes (Other)
  Sender: FDA-Public Use
  Company Number: IT-JNJFOC-20190634640

PATIENT
  Age: 45 Year
  Sex: Female

DRUGS (1)
  1. REMICADE [Suspect]
     Active Substance: INFLIXIMAB
     Indication: GASTROINTESTINAL DISORDER
     Route: 042

REACTIONS (3)
  - Kaposi^s sarcoma [Recovered/Resolved]
  - Off label use [Unknown]
  - Product use in unapproved indication [Unknown]
